FAERS Safety Report 8326464-9 (Version None)
Quarter: 2012Q2

REPORT INFORMATION
  Report Type: 
  Country: None (occurrence: None)
  Receive Date: 20120501
  Receipt Date: 20090717
  Transmission Date: 20120825
  Serious: No
  Sender: FDA-Public Use
  Company Number: US-TEVA-2009008675

PATIENT
  Sex: Male
  Weight: 90.8 kg

DRUGS (9)
  1. PRILOSEC [Concomitant]
     Dates: start: 20030101
  2. ABILIFY [Concomitant]
     Indication: DEPRESSION
     Dates: start: 19990101
  3. CRESTOR [Concomitant]
     Indication: BLOOD CHOLESTEROL INCREASED
     Dates: start: 20080101
  4. ADDERALL XR 10 [Concomitant]
     Indication: ATTENTION DEFICIT/HYPERACTIVITY DISORDER
     Dates: start: 20030101
  5. LAMICTAL [Concomitant]
     Dates: start: 20030101
  6. LEXAPRO [Concomitant]
     Indication: DEPRESSION
     Dates: start: 19990101
  7. NUVIGIL [Suspect]
     Indication: SLEEP APNOEA SYNDROME
     Dosage: 150 MILLIGRAM;
     Route: 048
     Dates: start: 20090717
  8. KLONOPIN [Concomitant]
     Indication: ANXIETY DISORDER
     Dates: start: 19990101
  9. AMBIEN CR [Concomitant]
     Indication: INSOMNIA
     Dates: start: 20090201

REACTIONS (1)
  - DRUG INEFFECTIVE [None]
